FAERS Safety Report 8760135 (Version 1)
Quarter: 2012Q4

REPORT INFORMATION
  Report Type: 
  Country: US (occurrence: US)
  Receive Date: 20120829
  Receipt Date: 20120829
  Transmission Date: 20130627
  Serious: Yes (Other)
  Sender: FDA-Public Use
  Company Number: US-ROCHE-1105078

PATIENT
  Sex: Female

DRUGS (6)
  1. HERCEPTIN [Suspect]
     Indication: BREAST CANCER
  2. DOCETAXEL [Suspect]
     Indication: BREAST CANCER
  3. CARBOPLATIN [Suspect]
     Indication: BREAST CANCER
  4. XELODA [Suspect]
     Indication: BREAST CANCER METASTATIC
     Dates: start: 20120602
  5. TYKERB [Suspect]
     Indication: BREAST CANCER METASTATIC
     Dates: start: 20120602
  6. PERJETA [Suspect]
     Indication: PRODUCT USED FOR UNKNOWN INDICATION

REACTIONS (8)
  - Diarrhoea [Unknown]
  - Neuropathy peripheral [Unknown]
  - Abdominal pain [Unknown]
  - Decreased appetite [Unknown]
  - Metastases to liver [Unknown]
  - Metastases to liver [Not Recovered/Not Resolved]
  - No therapeutic response [Unknown]
  - Disease progression [Not Recovered/Not Resolved]
